FAERS Safety Report 9642503 (Version 1)
Quarter: 2013Q4

REPORT INFORMATION
  Report Type: Spontaneous
  Country: US (occurrence: US)
  Receive Date: 20131024
  Receipt Date: 20131024
  Transmission Date: 20140711
  Serious: Yes (Death, Hospitalization, Other)
  Sender: FDA-Public Use
  Company Number: US-AMGEN-USASP2013073941

PATIENT
  Sex: Female

DRUGS (3)
  1. XGEVA [Suspect]
     Indication: PRODUCT USED FOR UNKNOWN INDICATION
     Route: 065
  2. CALCIUM [Concomitant]
     Dosage: 600 UNK, QID
  3. VITAMIN D                          /00107901/ [Concomitant]
     Dosage: 50000 UNK, UNK

REACTIONS (3)
  - Hypocalcaemia [Unknown]
  - Death [Fatal]
  - Disease complication [Unknown]
